FAERS Safety Report 9480458 (Version 1)
Quarter: 2013Q3

REPORT INFORMATION
  Report Type: Spontaneous
  Country: US (occurrence: US)
  Receive Date: 20130828
  Receipt Date: 20130828
  Transmission Date: 20140515
  Serious: Yes (Hospitalization, Other)
  Sender: FDA-Public Use
  Company Number: US-AMGEN-KDL104244

PATIENT
  Age: 49 Year
  Sex: Male

DRUGS (1)
  1. ENBREL [Suspect]
     Indication: DERMATOMYOSITIS
     Dosage: 25 MG, 2 TIMES/WK
     Route: 058
     Dates: start: 20040617, end: 20040717

REACTIONS (1)
  - Pneumonia [Unknown]
